FAERS Safety Report 15607993 (Version 2)
Quarter: 2018Q4

REPORT INFORMATION
  Report Type: Report from Study
  Country: DE (occurrence: DE)
  Receive Date: 20181112
  Receipt Date: 20181124
  Transmission Date: 20190205
  Serious: Yes (Death, Hospitalization, Other)
  Sender: FDA-Public Use
  Company Number: PHHY2016DE053391

PATIENT
  Age: 72 Year
  Sex: Male
  Weight: 111 kg

DRUGS (16)
  1. NEBIVOLOL. [Concomitant]
     Active Substance: NEBIVOLOL
     Indication: HYPERTENSION
     Dosage: 1 DF, QD (IN MORNING) (1-0-0)
     Route: 065
     Dates: start: 20100127
  2. EXJADE [Suspect]
     Active Substance: DEFERASIROX
     Dosage: 2 DF, QD (9.00 MG/KG, TABLETS, 500 MG)
     Route: 065
     Dates: start: 20160809, end: 20170105
  3. CEFTAZIDIME. [Concomitant]
     Active Substance: CEFTAZIDIME
     Indication: INJECTION SITE INFECTION
     Dosage: UNK
     Route: 065
     Dates: start: 20180523, end: 20180604
  4. APIDRA [Concomitant]
     Active Substance: INSULIN GLULISINE
     Indication: DIABETES MELLITUS
     Dosage: 4 IU, QD (IN MORNING)
     Route: 065
     Dates: start: 20110328
  5. EXJADE [Suspect]
     Active Substance: DEFERASIROX
     Dosage: 5 DF, QD (16.20 MG/KG, TABLETS, 360 MG)
     Route: 065
     Dates: start: 20170209
  6. EXJADE [Suspect]
     Active Substance: DEFERASIROX
     Indication: MYELODYSPLASTIC SYNDROME
     Dosage: 1 DF, QD (250 MG TABLET, 2.25 MG/KG)
     Route: 065
     Dates: start: 20151003, end: 20151009
  7. FLUVASTATIN [Concomitant]
     Active Substance: FLUVASTATIN SODIUM
     Indication: OBESITY
     Dosage: 80 OT, QD (IN MORNING) (1-0-0)
     Route: 065
     Dates: start: 20110328
  8. LANTUS [Concomitant]
     Active Substance: INSULIN GLARGINE
     Indication: DIABETES MELLITUS
     Dosage: 16 IU, QD (IN MORNING)
     Route: 065
     Dates: start: 20110328
  9. VANCOMYCIN [Concomitant]
     Active Substance: VANCOMYCIN
     Indication: INJECTION SITE INFECTION
     Dosage: UNK
     Route: 065
     Dates: start: 20180525, end: 20180601
  10. EXJADE [Suspect]
     Active Substance: DEFERASIROX
     Dosage: 3 DF, QD (500 MG TABLET, 13.27 MG/KG)
     Route: 065
     Dates: start: 20160426, end: 20160808
  11. EXJADE [Suspect]
     Active Substance: DEFERASIROX
     Dosage: 2 DF, QD (250 MG TABLET, 4.5 MG/KG)
     Route: 065
     Dates: start: 20151010, end: 20151020
  12. EXJADE [Suspect]
     Active Substance: DEFERASIROX
     Dosage: 1 DF, QD(1 TABLET A 500MG, 06.63 MG/KG)
     Route: 065
     Dates: start: 20151021, end: 20151106
  13. EXJADE [Suspect]
     Active Substance: DEFERASIROX
     Dosage: 2 DF, QD (8.85 MG/KG, TABLETS, 500 MG)
     Route: 065
     Dates: start: 20151107, end: 20151202
  14. EXJADE [Suspect]
     Active Substance: DEFERASIROX
     Dosage: 3 DF, QD (500 MG TABLET, 13.27 MG/KG)
     Route: 065
     Dates: start: 20151203, end: 20160110
  15. EXJADE [Suspect]
     Active Substance: DEFERASIROX
     Dosage: 2 DF, QD (9.00 MG/KG, TABLETS, 500 MG)
     Route: 065
     Dates: start: 20160111, end: 20160425
  16. EXJADE [Suspect]
     Active Substance: DEFERASIROX
     Dosage: 4 DF, QD (12.90 MG/KG, TABLETS, 360 MG)
     Route: 065
     Dates: start: 20170106, end: 20170208

REACTIONS (16)
  - Mastoiditis [Recovered/Resolved]
  - Alopecia [Recovered/Resolved]
  - Anaemia [Recovered/Resolved]
  - Cytomegalovirus infection [Recovered/Resolved]
  - Pathogen resistance [Unknown]
  - Angina pectoris [Not Recovered/Not Resolved]
  - Myelodysplastic syndrome [Fatal]
  - Malignant neoplasm progression [Fatal]
  - Platelet count decreased [Unknown]
  - Anaemia [Recovered/Resolved]
  - Anaemia [Recovered/Resolved]
  - Nausea [Recovered/Resolved]
  - Anaemia [Recovered/Resolved]
  - Neutropenia [Recovered/Resolved]
  - Neutropenia [Not Recovered/Not Resolved]
  - Anaemia [Not Recovered/Not Resolved]

NARRATIVE: CASE EVENT DATE: 20151020
